FAERS Safety Report 10007520 (Version 1)
Quarter: 2014Q1

REPORT INFORMATION
  Report Type: Spontaneous
  Country: US (occurrence: US)
  Receive Date: 20140313
  Receipt Date: 20140313
  Transmission Date: 20141002
  Serious: No
  Sender: FDA-Public Use
  Company Number: US-PFIZER INC-2014068385

PATIENT
  Age: 7 Month
  Sex: Female
  Weight: 7.6 kg

DRUGS (1)
  1. TYGACIL [Suspect]
     Indication: MYCOBACTERIUM ABSCESSUS INFECTION
     Dosage: 9 MG, EVERY 12 HRS
     Route: 042
     Dates: start: 20140218, end: 20140304

REACTIONS (3)
  - Blood fibrinogen decreased [Unknown]
  - Fibrin D dimer increased [Unknown]
  - Prothrombin time prolonged [Unknown]
